FAERS Safety Report 12209925 (Version 2)
Quarter: 2016Q1

REPORT INFORMATION
  Report Type: Spontaneous
  Country: US (occurrence: US)
  Receive Date: 20160325
  Receipt Date: 20160329
  Transmission Date: 20160526
  Serious: No
  Sender: FDA-Public Use
  Company Number: US-ASTRAZENECA-2016SE31899

PATIENT
  Sex: Female
  Weight: 74.4 kg

DRUGS (5)
  1. CALCIUM [Concomitant]
     Active Substance: CALCIUM
     Indication: BONE DISORDER
  2. FASLODEX [Suspect]
     Active Substance: FULVESTRANT
     Route: 030
  3. VITAMINS NOS [Concomitant]
     Active Substance: VITAMINS
     Indication: BONE DISORDER
  4. IBRANCE [Suspect]
     Active Substance: PALBOCICLIB
     Route: 048
  5. MINERALS NOS [Concomitant]
     Active Substance: MINERALS
     Indication: BONE DISORDER

REACTIONS (1)
  - Swelling face [Recovered/Resolved]
